FAERS Safety Report 14992467 (Version 1)
Quarter: 2018Q2

REPORT INFORMATION
  Report Type: Spontaneous
  Country: DE (occurrence: DE)
  Receive Date: 20180609
  Receipt Date: 20180609
  Transmission Date: 20180711
  Serious: Yes (Hospitalization)
  Sender: FDA-Public Use
  Company Number: DE-TEVA-2018-DE-903974

PATIENT
  Age: 54 Year
  Sex: Male

DRUGS (8)
  1. PANTOPRAZOL [Concomitant]
     Active Substance: PANTOPRAZOLE SODIUM
     Dosage: 0-0-0-1
  2. EPLERENONE. [Suspect]
     Active Substance: EPLERENONE
     Dosage: 1-0-0-0
     Route: 065
  3. METOPROLOL. [Suspect]
     Active Substance: METOPROLOL
     Dosage: 1-0-1-0
     Route: 065
  4. TIOTROPIUM BROMIDE [Concomitant]
     Active Substance: TIOTROPIUM BROMIDE
     Dosage: 1-0-0-0
  5. FORMOTEROL [Concomitant]
     Active Substance: FORMOTEROL
     Dosage: 1-0-1-0
     Route: 065
  6. ATORVASTATIN [Concomitant]
     Active Substance: ATORVASTATIN
     Dosage: 0-0-1-0
     Route: 065
  7. ASS 100 [Concomitant]
     Active Substance: ASPIRIN
     Dosage: 0-1-0-1
  8. RAMIPRIL. [Suspect]
     Active Substance: RAMIPRIL
     Dosage: 1-0-1-0
     Route: 065

REACTIONS (2)
  - Syncope [Unknown]
  - Fall [Unknown]
